FAERS Safety Report 7381764-4 (Version None)
Quarter: 2011Q1

REPORT INFORMATION
  Report Type: 
  Country: None (occurrence: None)
  Receive Date: 20110329
  Receipt Date: 20101014
  Transmission Date: 20110831
  Serious: Yes (Hospitalization)
  Sender: FDA-Public Use
  Company Number: US-BAYER-201034823NA

PATIENT
  Sex: Female
  Weight: 61.224 kg

DRUGS (2)
  1. NSAID'S [Concomitant]
  2. YASMIN [Suspect]
     Dosage: UNK
     Dates: start: 20060201, end: 20070101

REACTIONS (2)
  - CHOLECYSTITIS CHRONIC [None]
  - GALLBLADDER DISORDER [None]
